FAERS Safety Report 21844169 (Version 1)
Quarter: 2023Q1

REPORT INFORMATION
  Report Type: Report from Study
  Country: US (occurrence: None)
  Receive Date: 20230110
  Receipt Date: 20230110
  Transmission Date: 20230417
  Serious: Yes (Hospitalization)
  Sender: FDA-Public Use
  Company Number: 2023A001542

PATIENT
  Sex: Female

DRUGS (2)
  1. BRILINTA [Suspect]
     Active Substance: TICAGRELOR
     Route: 048
  2. LASIX [Concomitant]
     Active Substance: FUROSEMIDE

REACTIONS (6)
  - Oxygen saturation decreased [Unknown]
  - Hypotension [Unknown]
  - Hypopnoea [Unknown]
  - Chest discomfort [Unknown]
  - Sleep deficit [Unknown]
  - Weight decreased [Unknown]
